FAERS Safety Report 18968141 (Version 1)
Quarter: 2021Q1

REPORT INFORMATION
  Report Type: Spontaneous
  Country: US (occurrence: US)
  Receive Date: 20210304
  Receipt Date: 20210304
  Transmission Date: 20210420
  Serious: No
  Sender: FDA-Public Use
  Company Number: None

PATIENT
  Age: 20 Year
  Sex: Female
  Weight: 67 kg

DRUGS (4)
  1. SOLU?CORTEF 100 MG IVP [Concomitant]
     Dates: start: 20210303, end: 20210303
  2. STELARA [Suspect]
     Active Substance: USTEKINUMAB
     Indication: RECTAL HAEMORRHAGE
     Dosage: ?          OTHER FREQUENCY:IV INFUSION;?
     Route: 041
     Dates: start: 20210303, end: 20210303
  3. DIPHENHYDRAMINE 50 MG IVP [Concomitant]
     Dates: start: 20210303, end: 20210303
  4. STELARA [Suspect]
     Active Substance: USTEKINUMAB
     Indication: COLITIS ULCERATIVE
     Dosage: ?          OTHER FREQUENCY:IV INFUSION;?
     Route: 041
     Dates: start: 20210303, end: 20210303

REACTIONS (3)
  - Infusion related reaction [None]
  - Dyspnoea [None]
  - Chest discomfort [None]

NARRATIVE: CASE EVENT DATE: 20210303
